FAERS Safety Report 18310345 (Version 3)
Quarter: 2020Q4

REPORT INFORMATION
  Report Type: Report from Study
  Country: US (occurrence: US)
  Receive Date: 20200924
  Receipt Date: 20201118
  Transmission Date: 20210113
  Serious: No
  Sender: FDA-Public Use
  Company Number: NVSC2020US259128

PATIENT
  Sex: Male

DRUGS (1)
  1. COSENTYX [Suspect]
     Active Substance: SECUKINUMAB
     Indication: PSORIASIS
     Dosage: 300 MG, QW FOR 5 WEEKS THEN EVERY 4 WEEKS
     Route: 058
     Dates: start: 20200824

REACTIONS (3)
  - Therapeutic product effect decreased [Unknown]
  - Macule [Unknown]
  - Pruritus [Unknown]
